FAERS Safety Report 14695190 (Version 1)
Quarter: 2018Q1

REPORT INFORMATION
  Report Type: Spontaneous
  Country: US (occurrence: US)
  Receive Date: 20180329
  Receipt Date: 20180329
  Transmission Date: 20180509
  Serious: No
  Sender: FDA-Public Use
  Company Number: US-UPSHER-SMITH LABORATORIES, LLC-2017USL00312

PATIENT
  Sex: Female

DRUGS (3)
  1. METHADONE [Concomitant]
     Active Substance: METHADONE HYDROCHLORIDE
  2. VICODIN [Concomitant]
     Active Substance: ACETAMINOPHEN\HYDROCODONE BITARTRATE
     Dosage: UNK
  3. PREVALITE [Suspect]
     Active Substance: CHOLESTYRAMINE
     Indication: DIARRHOEA
     Dosage: UNK UNK
     Dates: start: 201710

REACTIONS (5)
  - Faeces soft [Unknown]
  - Faeces hard [Recovered/Resolved]
  - Constipation [Recovered/Resolved]
  - Abdominal pain upper [Not Recovered/Not Resolved]
  - Proctalgia [Not Recovered/Not Resolved]

NARRATIVE: CASE EVENT DATE: 201711
